FAERS Safety Report 5091531-2 (Version None)
Quarter: 2006Q3

REPORT INFORMATION
  Report Type: 
  Country: None (occurrence: None)
  Receive Date: 20060829
  Receipt Date: 20060809
  Transmission Date: 20061208
  Serious: Yes (Other)
  Sender: FDA-Public Use
  Company Number: FR-ROCHE-459272

PATIENT
  Sex: Male

DRUGS (1)
  1. CYMEVAN [Suspect]
     Indication: DRUG USE FOR UNKNOWN INDICATION
     Route: 042

REACTIONS (2)
  - INJECTION SITE EXTRAVASATION [None]
  - INJECTION SITE OEDEMA [None]
